FAERS Safety Report 24248672 (Version 1)
Quarter: 2024Q3

REPORT INFORMATION
  Report Type: Spontaneous
  Country: GB (occurrence: GB)
  Receive Date: 20240826
  Receipt Date: 20240826
  Transmission Date: 20241016
  Serious: Yes (Disabling)
  Sender: MYLAN
  Company Number: GB-MHRA-TPP17761064C9489811YC1724084081235

PATIENT
  Age: 70 Year
  Sex: Female
  Weight: 66 kg

DRUGS (19)
  1. MONTELUKAST [Suspect]
     Active Substance: MONTELUKAST SODIUM
     Indication: Ill-defined disorder
     Dosage: 10 MILLIGRAM, PM (AT NIGHT)
     Route: 065
     Dates: start: 20240626, end: 20240724
  2. AMOXICILLIN\CLAVULANATE POTASSIUM [Concomitant]
     Active Substance: AMOXICILLIN\CLAVULANATE POTASSIUM
     Indication: Ill-defined disorder
     Dosage: 1 DOSAGE FORM, TID (TAKE ONE TABLET THREE TIMES A DAY)
     Route: 065
     Dates: start: 20240715, end: 20240722
  3. FLUCONAZOLE [Concomitant]
     Active Substance: FLUCONAZOLE
     Indication: Ill-defined disorder
     Dosage: UNK (USE AS DIRECTED)
     Route: 065
     Dates: start: 20240723, end: 20240724
  4. FLUTICASONE FUROATE\VILANTEROL TRIFENATATE [Concomitant]
     Active Substance: FLUTICASONE FUROATE\VILANTEROL TRIFENATATE
     Indication: Ill-defined disorder
     Dosage: 1 DOSAGE FORM, QD (INHALE 1 DOSE DAILY)
     Route: 055
     Dates: start: 20240723
  5. VENTOLIN [Concomitant]
     Active Substance: ALBUTEROL SULFATE
     Indication: Ill-defined disorder
     Dosage: 1 DOSAGE FORM, QID (INHALE 1 DOSE UP TO FOUR TIMES A DAY AS NEEDED)
     Route: 055
     Dates: start: 20240723, end: 20240807
  6. COTRIMOXAZOLE [Concomitant]
     Active Substance: SULFAMETHOXAZOLE\TRIMETHOPRIM
     Indication: Ill-defined disorder
     Dosage: 1 DOSAGE FORM, BID  (ONE TABLET TWICE DAILY FOR 7 DAYS)
     Route: 065
     Dates: start: 20240729, end: 20240805
  7. ATRAUMAN AG [Concomitant]
     Indication: Ill-defined disorder
     Dosage: UNK (AS DIRECTED)
     Route: 065
     Dates: start: 20240802, end: 20240803
  8. PREDNISOLONE [Concomitant]
     Active Substance: PREDNISOLONE
     Indication: Ill-defined disorder
     Dosage: 8 DOSAGE FORM, QD (EIGHT TO BE TAKEN ONCE DAILY FOR FIVE DAYS)
     Route: 065
     Dates: start: 20240814, end: 20240819
  9. GLYCOPYRROLATE\INDACATEROL\MOMETASONE FUROATE [Concomitant]
     Active Substance: GLYCOPYRROLATE\INDACATEROL\MOMETASONE FUROATE
     Indication: Ill-defined disorder
     Dosage: 1 DOSAGE FORM, QD (INHALE ONE DOSE ONCE DAILY)
     Route: 055
     Dates: start: 20240819
  10. CALCIUM CARBONATE\CHOLECALCIFEROL [Concomitant]
     Active Substance: CALCIUM CARBONATE\CHOLECALCIFEROL
     Indication: Ill-defined disorder
     Dosage: 1 DOSAGE FORM, BID (TAKE ONE TWICE DAILY)
     Route: 065
     Dates: start: 20230616
  11. Hydromol [Concomitant]
     Indication: Ill-defined disorder
     Dosage: UNK UNK, TID (APPLY THREE TIMES A DAY AS PER DERMATOLOGIST)
     Route: 065
     Dates: start: 20230616
  12. IBANDRONIC ACID [Concomitant]
     Active Substance: IBANDRONIC ACID
     Indication: Ill-defined disorder
     Dosage: 1 DOSAGE FORM, MONTHLY (TAKE ONE TABLET ONCE A MONTH)
     Route: 065
     Dates: start: 20230616, end: 20240812
  13. DYMISTA [Concomitant]
     Active Substance: AZELASTINE HYDROCHLORIDE\FLUTICASONE PROPIONATE
     Indication: Ill-defined disorder
     Dosage: UNK UNK, BID (ONE PUFF TWICE DAILY)
     Route: 065
     Dates: start: 20230821
  14. OMEPRAZOLE [Concomitant]
     Active Substance: OMEPRAZOLE
     Indication: Ill-defined disorder
     Dosage: 1 DOSAGE FORM, QD (TAKE ONE DAILY)
     Route: 065
     Dates: start: 20240216
  15. DICLOFENAC DIETHYLAMINE [Concomitant]
     Active Substance: DICLOFENAC DIETHYLAMINE
     Indication: Ill-defined disorder
     Dosage: UNK UNK, TID (APPLY 3 TIMES/DAY)
     Route: 065
     Dates: start: 20240312
  16. ALBUTEROL [Concomitant]
     Active Substance: ALBUTEROL
     Indication: Ill-defined disorder
     Dosage: UNK UNK, QID (INHALE ONE OR TWO DOSES UP TO FOUR TIMES A DAY)
     Route: 055
     Dates: start: 20240410
  17. COCODAMOL [Concomitant]
     Active Substance: ACETAMINOPHEN\CODEINE PHOSPHATE
     Indication: Ill-defined disorder
     Dosage: UNK UNK, QID (TAKE 1 OR 2 4 TIMES/DAY)
     Route: 065
     Dates: start: 20240514
  18. ROSUVASTATIN [Concomitant]
     Active Substance: ROSUVASTATIN\ROSUVASTATIN CALCIUM
     Indication: Ill-defined disorder
     Dosage: 1 DOSAGE FORM, QD (TAKE ONE DAILY)
     Route: 065
     Dates: start: 20240514
  19. SERETIDE [Concomitant]
     Active Substance: FLUTICASONE PROPIONATE\SALMETEROL XINAFOATE
     Indication: Ill-defined disorder
     Dosage: 2 DOSAGE FORM, QD (INHALE 2 DOSE ONCE/ TWICE DAILY)
     Route: 055
     Dates: start: 20240514

REACTIONS (2)
  - Nightmare [Unknown]
  - Mood altered [Unknown]

NARRATIVE: CASE EVENT DATE: 20240819
